FAERS Safety Report 7940484-5 (Version None)
Quarter: 2011Q4

REPORT INFORMATION
  Report Type: 
  Country: None (occurrence: None)
  Receive Date: 20111128
  Receipt Date: 20111122
  Transmission Date: 20120403
  Serious: No
  Sender: FDA-Public Use
  Company Number: US-PFIZER INC-2011286731

PATIENT
  Sex: Male

DRUGS (5)
  1. CIPROFLOXACIN [Concomitant]
     Dosage: 500 MG, UNK
  2. LISINOPRIL [Concomitant]
     Dosage: 10 MG, UNK
  3. AMLODIPINE [Concomitant]
     Dosage: 10 MG, UNK
  4. HUMALOG [Concomitant]
     Dosage: 75/25
  5. SUTENT [Suspect]
     Dosage: 50 MG, 1X/DAY, 4 WEEKS ON/2 WEEKS OFF
     Route: 048

REACTIONS (3)
  - NASOPHARYNGITIS [None]
  - DRY SKIN [None]
  - COUGH [None]
